FAERS Safety Report 6872077-5 (Version None)
Quarter: 2010Q3

REPORT INFORMATION
  Report Type: 
  Country: None (occurrence: None)
  Receive Date: 20100723
  Receipt Date: 20100713
  Transmission Date: 20110219
  Serious: Yes (Other)
  Sender: FDA-Public Use
  Company Number: US-ABBOTT-10P-163-0657358-00

PATIENT
  Sex: Female

DRUGS (10)
  1. ESTAZOLAM [Suspect]
     Indication: MAJOR DEPRESSION
  2. EFFEXOR [Suspect]
     Indication: MAJOR DEPRESSION
  3. CLONAZEPAM [Suspect]
     Indication: MAJOR DEPRESSION
  4. OXAZEPAM [Suspect]
     Indication: MAJOR DEPRESSION
  5. KARDEGIC [Concomitant]
     Indication: PRODUCT USED FOR UNKNOWN INDICATION
  6. NOCERTONE [Concomitant]
     Indication: MIGRAINE
  7. IKARAN [Concomitant]
     Indication: MIGRAINE
  8. PRAXINOR [Concomitant]
     Indication: PRODUCT USED FOR UNKNOWN INDICATION
  9. ESBERIVEN [Concomitant]
     Indication: PRODUCT USED FOR UNKNOWN INDICATION
  10. VASTAREL [Concomitant]
     Indication: PRODUCT USED FOR UNKNOWN INDICATION

REACTIONS (1)
  - PREMATURE RUPTURE OF MEMBRANES [None]
